FAERS Safety Report 16375786 (Version 1)
Quarter: 2019Q2

REPORT INFORMATION
  Report Type: Spontaneous
  Country: US (occurrence: US)
  Receive Date: 20190531
  Receipt Date: 20190531
  Transmission Date: 20190711
  Serious: No
  Sender: FDA-Public Use
  Company Number: US-009507513-1905USA010709

PATIENT
  Age: 30 Year
  Sex: Female
  Weight: 47.62 kg

DRUGS (1)
  1. NEXPLANON [Suspect]
     Active Substance: ETONOGESTREL
     Indication: CONTRACEPTION
     Dosage: FREQUENCY: 3 YEARS; ROUTE: LEFT ARM
     Route: 059
     Dates: start: 20190522

REACTIONS (2)
  - Implant site swelling [Unknown]
  - Implant site reaction [Unknown]

NARRATIVE: CASE EVENT DATE: 20190522
